FAERS Safety Report 4493109-8 (Version None)
Quarter: 2004Q4

REPORT INFORMATION
  Report Type: 
  Country: None (occurrence: None)
  Receive Date: 20041104
  Receipt Date: 20041007
  Transmission Date: 20050328
  Serious: Yes (Life-Threatening, Hospitalization)
  Sender: FDA-Public Use
  Company Number: JP-GLAXOSMITHKLINE-B0347815A

PATIENT
  Age: 84 Year
  Sex: Male

DRUGS (10)
  1. VALTREX [Suspect]
     Indication: HERPES ZOSTER
     Dosage: 1000MG THREE TIMES PER DAY
     Route: 048
     Dates: start: 20040813, end: 20040823
  2. ALOSENN [Concomitant]
     Route: 048
  3. AM [Concomitant]
     Route: 048
  4. GLYBURIDE [Concomitant]
     Dosage: 6.25MG PER DAY
     Route: 048
  5. LIVALO [Concomitant]
     Dosage: 2MG PER DAY
     Route: 048
     Dates: start: 20031112
  6. NORVASC [Concomitant]
     Indication: HYPERTENSION
     Dosage: 2.5MG PER DAY
     Route: 048
  7. BLOPRESS [Concomitant]
     Indication: HYPERTENSION
     Dosage: 8MG PER DAY
     Route: 048
  8. MARZULENE S [Concomitant]
     Indication: GASTRITIS
     Dosage: 1.5G SINGLE DOSE
     Route: 048
  9. ADJUST A [Concomitant]
     Indication: CONSTIPATION
     Dosage: 80MG PER DAY
     Route: 048
  10. MAGMITT [Concomitant]
     Indication: CONSTIPATION
     Dosage: 990MG PER DAY
     Route: 048
     Dates: start: 20040601

REACTIONS (4)
  - BLOOD CREATININE INCREASED [None]
  - BLOOD POTASSIUM INCREASED [None]
  - BLOOD UREA INCREASED [None]
  - RENAL FAILURE ACUTE [None]
